FAERS Safety Report 5314864-0 (Version None)
Quarter: 2007Q2

REPORT INFORMATION
  Report Type: 
  Country: None (occurrence: None)
  Receive Date: 20070426
  Receipt Date: 20070411
  Transmission Date: 20071010
  Serious: Yes (Hospitalization)
  Sender: FDA-Public Use
  Company Number: 2007S1003107

PATIENT
  Sex: Male

DRUGS (1)
  1. PHENYTOIN SODIUM [Suspect]
     Dosage: ORAL
     Route: 048
     Dates: start: 20050301, end: 20050409

REACTIONS (4)
  - EYE DISORDER [None]
  - HYPERSENSITIVITY [None]
  - SCAR [None]
  - STEVENS-JOHNSON SYNDROME [None]
